FAERS Safety Report 6331811-3 (Version None)
Quarter: 2009Q3

REPORT INFORMATION
  Report Type: 
  Country: None (occurrence: None)
  Receive Date: 20090826
  Receipt Date: 20090813
  Transmission Date: 20100115
  Serious: Yes (Death, Hospitalization)
  Sender: FDA-Public Use
  Company Number: 007308

PATIENT
  Age: 65 Year
  Sex: Female
  Weight: 50.5 kg

DRUGS (16)
  1. PLETAL [Suspect]
     Indication: CEREBRAL INFARCTION
     Dosage: 50 MG, DAILY DOSE ORAL
     Route: 048
     Dates: end: 20090618
  2. TARCEVA [Suspect]
     Indication: NON-SMALL CELL LUNG CANCER
     Dosage: 150 MG, DAILY DOSE ORAL; 75 MG, DAILY DOSE; ORAL
     Route: 048
     Dates: start: 20090603, end: 20090609
  3. TARCEVA [Suspect]
     Indication: NON-SMALL CELL LUNG CANCER
     Dosage: 150 MG, DAILY DOSE ORAL; 75 MG, DAILY DOSE; ORAL
     Route: 048
     Dates: start: 20090610, end: 20090618
  4. LOXONIN (LOXOPROFEN SODIUM) [Suspect]
     Indication: NON-SMALL CELL LUNG CANCER
     Dosage: ORAL; PRN; ORAL; 180 MG, DAILY DOSE; ORAL
     Route: 048
     Dates: start: 20080805, end: 20080805
  5. LOXONIN (LOXOPROFEN SODIUM) [Suspect]
     Indication: NON-SMALL CELL LUNG CANCER
     Dosage: ORAL; PRN; ORAL; 180 MG, DAILY DOSE; ORAL
     Route: 048
     Dates: start: 20090406, end: 20090618
  6. LOXONIN (LOXOPROFEN SODIUM) [Suspect]
     Indication: NON-SMALL CELL LUNG CANCER
     Dosage: ORAL; PRN; ORAL; 180 MG, DAILY DOSE; ORAL
     Route: 048
     Dates: start: 20090223
  7. PLAVIX [Suspect]
     Dosage: 75 MG, DAILY DOSE; ORAL
     Route: 048
     Dates: end: 20090618
  8. UFT (TEGAFUR URACIL) CAPSULE [Concomitant]
  9. RINDERON (BETAMETHASONE) UNKNOWN [Concomitant]
  10. MAGNESIUM OXIDE (MAGNESIUM OXIDE) POWEDER FOR ORAL SOLUTION [Concomitant]
  11. MUCOSTA (REBAMIPIDE) UNKNOWN [Concomitant]
  12. OXYCONTIN (OXYCODONE HYDROCHLORIDE) TABLET [Concomitant]
  13. HERBESSOR R (DILTIAZEM HYDROCHLORIDE) CAPSULE [Concomitant]
  14. SIGMART (NICORANDIL) TABLET [Concomitant]
  15. ADALAT CR (NIFEDIPINE) TABLET [Concomitant]
  16. LIVALO (PITAVASTATIN CALCIUM) TABLET [Concomitant]

REACTIONS (13)
  - ALTERED STATE OF CONSCIOUSNESS [None]
  - ANAEMIA [None]
  - BLOOD GLUCOSE INCREASED [None]
  - CONSTIPATION [None]
  - DIARRHOEA [None]
  - DRUG INTERACTION [None]
  - GASTROINTESTINAL ULCER HAEMORRHAGE [None]
  - GENERAL PHYSICAL HEALTH DETERIORATION [None]
  - METASTASES TO SMALL INTESTINE [None]
  - NO THERAPEUTIC RESPONSE [None]
  - RESPIRATORY ARREST [None]
  - SHOCK HAEMORRHAGIC [None]
  - URINE OUTPUT DECREASED [None]
